FAERS Safety Report 23810151 (Version 1)
Quarter: 2024Q2

REPORT INFORMATION
  Report Type: Report from Study
  Country: US (occurrence: US)
  Receive Date: 20240502
  Receipt Date: 20240502
  Transmission Date: 20240715
  Serious: Yes (Death)
  Sender: FDA-Public Use
  Company Number: US-ABBVIE-5741885

PATIENT
  Age: 92 Year
  Sex: Female

DRUGS (1)
  1. CREON [Suspect]
     Active Substance: PANCRELIPASE AMYLASE\PANCRELIPASE LIPASE\PANCRELIPASE PROTEASE
     Indication: Product used for unknown indication
     Dosage: ONE CAPSULE WITH MEAL AND ONE CAPSULE TWICE A DAY FOR SNACK?FORM STRENGTH: 36000 UNIT
     Route: 048

REACTIONS (2)
  - Death [Fatal]
  - Underweight [Unknown]

NARRATIVE: CASE EVENT DATE: 20240307
